FAERS Safety Report 17517468 (Version 3)
Quarter: 2020Q4

REPORT INFORMATION
  Report Type: Spontaneous
  Country: US (occurrence: US)
  Receive Date: 20200309
  Receipt Date: 20201207
  Transmission Date: 20210113
  Serious: No
  Sender: FDA-Public Use
  Company Number: US-SA-2020SA059235

PATIENT

DRUGS (2)
  1. DUPIXENT [Suspect]
     Active Substance: DUPILUMAB
     Dosage: 300 MG,QOW
     Route: 058
     Dates: start: 2020
  2. DUPIXENT [Suspect]
     Active Substance: DUPILUMAB
     Indication: DERMATITIS ATOPIC
     Dosage: 300 MG, 1X
     Route: 058
     Dates: start: 20200216, end: 20200216

REACTIONS (6)
  - Rebound eczema [Unknown]
  - Rash [Unknown]
  - Feeling hot [Unknown]
  - Incorrect dose administered [Unknown]
  - Pruritus [Unknown]
  - Unevaluable event [Unknown]

NARRATIVE: CASE EVENT DATE: 2020
